FAERS Safety Report 18965283 (Version 3)
Quarter: 2021Q1

REPORT INFORMATION
  Report Type: Report from Study
  Country: DE (occurrence: DE)
  Receive Date: 20210303
  Receipt Date: 20210323
  Transmission Date: 20210420
  Serious: Yes (Death, Hospitalization)
  Sender: FDA-Public Use
  Company Number: DE-EXELIXIS-XL18421038116

PATIENT

DRUGS (1)
  1. XL184 [Suspect]
     Active Substance: CABOZANTINIB
     Indication: RENAL CELL CARCINOMA
     Dosage: 40 MG, QD
     Dates: start: 20190813, end: 20200217

REACTIONS (1)
  - Cardiogenic shock [Fatal]

NARRATIVE: CASE EVENT DATE: 20200217
